FAERS Safety Report 5827686-9 (Version None)
Quarter: 2008Q2

REPORT INFORMATION
  Report Type: 
  Country: None (occurrence: None)
  Receive Date: 20080601
  Receipt Date: 20080208
  Transmission Date: 20081010
  Serious: No
  Sender: FDA-Public Use
  Company Number: US200802002176

PATIENT
  Age: 62 Year
  Sex: Female
  Weight: 130.6 kg

DRUGS (4)
  1. BYETTA [Suspect]
     Indication: TYPE 2 DIABETES MELLITUS
     Dosage: 5 UG, 2/D, SUBCUTANEOUS
     Route: 058
     Dates: start: 20080130
  2. PAXIL [Concomitant]
  3. INDERAL [Concomitant]
  4. AMARYL [Concomitant]

REACTIONS (2)
  - FEELING JITTERY [None]
  - PALPITATIONS [None]
